FAERS Safety Report 16184611 (Version 1)
Quarter: 2019Q2

REPORT INFORMATION
  Report Type: Spontaneous
  Country: JP (occurrence: JP)
  Receive Date: 20190411
  Receipt Date: 20190411
  Transmission Date: 20190711
  Serious: Yes (Hospitalization, Other)
  Sender: FDA-Public Use
  Company Number: JP-PFIZER INC-2019145811

PATIENT
  Age: 74 Year
  Sex: Female
  Weight: 30 kg

DRUGS (21)
  1. METHOTREXATE SODIUM. [Suspect]
     Active Substance: METHOTREXATE SODIUM
     Indication: RHEUMATOID ARTHRITIS
     Dosage: 2 MG, WEEKLY
     Dates: start: 20060726
  2. TSUMURA YOKUKANSAN EXTRACT GRANULES FOR ETHICAL USE [Concomitant]
     Active Substance: HERBALS
  3. LUNESTA [Concomitant]
     Active Substance: ESZOPICLONE
     Dosage: UNK
  4. CARFENIL [Concomitant]
     Dosage: UNK
     Dates: start: 2002
  5. RIMATIL [Concomitant]
     Active Substance: BUCILLAMINE
     Dosage: UNK
     Dates: start: 2002
  6. RISPERDAL [Concomitant]
     Active Substance: RISPERIDONE
     Dosage: UNK
  7. SENNOSIDE SAWAI [Concomitant]
     Dosage: UNK
  8. ENSURE [NUTRIENTS NOS] [Concomitant]
     Dosage: UNK
  9. EDIROL [Concomitant]
     Active Substance: ELDECALCITOL
     Dosage: UNK
  10. CANDESARTAN KYORIN [Concomitant]
     Dosage: UNK
  11. FUROSEMIDE TEVA [Concomitant]
     Active Substance: FUROSEMIDE
     Dosage: UNK
  12. MAGMITT [Concomitant]
     Active Substance: MAGNESIUM OXIDE
     Dosage: UNK
  13. MYCOSPOR [BIFONAZOLE] [Concomitant]
     Dosage: UNK
  14. METHOTREXATE SODIUM. [Suspect]
     Active Substance: METHOTREXATE SODIUM
     Dosage: 4 MG, WEEKLY (2MG, 2X/DAY)
     Route: 048
     Dates: start: 20060906, end: 20190124
  15. DONEPEZIL HYDROCHLORIDE. [Concomitant]
     Active Substance: DONEPEZIL HYDROCHLORIDE
     Dosage: UNK
  16. DAIMEDIN 3B [Concomitant]
     Dosage: UNK
  17. ACETAMINOPHEN. [Concomitant]
     Active Substance: ACETAMINOPHEN
     Dosage: UNK
  18. BIO-THREE [Concomitant]
     Active Substance: HERBALS
     Dosage: UNK
  19. BELSOMRA [Concomitant]
     Active Substance: SUVOREXANT
     Dosage: UNK
  20. ASPARA POTASSIUM [Concomitant]
     Active Substance: POTASSIUM ASPARTATE
     Dosage: UNK
  21. ASPARA-CA [Concomitant]
     Active Substance: CALCIUM ASPARTATE
     Dosage: UNK

REACTIONS (12)
  - Pyrexia [Unknown]
  - Myelodysplastic syndrome [Unknown]
  - Pyelonephritis [Unknown]
  - Folate deficiency [Unknown]
  - Decreased appetite [Unknown]
  - Renal impairment [Unknown]
  - Febrile neutropenia [Recovering/Resolving]
  - Pancytopenia [Recovered/Resolved]
  - Blood sodium increased [Unknown]
  - Bone marrow failure [Unknown]
  - Infection [Unknown]
  - Dehydration [Unknown]

NARRATIVE: CASE EVENT DATE: 201810
